FAERS Safety Report 26133229 (Version 1)
Quarter: 2025Q4

REPORT INFORMATION
  Report Type: Report from Study
  Country: US (occurrence: US)
  Receive Date: 20251209
  Receipt Date: 20251209
  Transmission Date: 20260118
  Serious: Yes (Death, Other)
  Sender: ETON PHARMACEUTICALS, INC
  Company Number: US-ETON-2025ETO000512

PATIENT

DRUGS (1)
  1. INCRELEX [Suspect]
     Active Substance: MECASERMIN
     Indication: Metabolic syndrome
     Dosage: 0.02 MILLILITER, BID
     Route: 058
     Dates: start: 20251023

REACTIONS (2)
  - Death [Fatal]
  - Off label use [Unknown]

NARRATIVE: CASE EVENT DATE: 20251023
